FAERS Safety Report 8776664 (Version 2)
Quarter: 2012Q4

REPORT INFORMATION
  Report Type: 
  Country: US (occurrence: US)
  Receive Date: 20120911
  Receipt Date: 20121227
  Transmission Date: 20130627
  Serious: Yes (Hospitalization)
  Sender: FDA-Public Use
  Company Number: US-NOVOPROD-359432

PATIENT
  Age: 60 Year
  Sex: Male

DRUGS (47)
  1. NOVOLOG [Suspect]
     Indication: TYPE 2 DIABETES MELLITUS
     Dosage: 26 U, tid
     Route: 058
     Dates: start: 20110516, end: 20111110
  2. NOVOLOG [Suspect]
     Dosage: unit as required
     Route: 058
     Dates: start: 20110623
  3. NOVOLOG [Suspect]
     Dosage: 20 U, UNK
     Route: 058
     Dates: start: 20120606
  4. INSULIN GLARGINE [Suspect]
     Indication: TYPE 2 DIABETES MELLITUS
     Dosage: 60 U, qd
     Route: 058
     Dates: start: 20100520, end: 20110521
  5. INSULIN GLARGINE [Suspect]
     Dosage: UNK
     Route: 058
     Dates: start: 20120606, end: 20120606
  6. ASPIRIN [Concomitant]
     Indication: PRODUCT USED FOR UNKNOWN INDICATION
     Dosage: 325 mg, qd
     Route: 048
     Dates: start: 20091204, end: 20111228
  7. ASPIRIN [Concomitant]
     Dosage: 81 mg, qd
     Route: 048
     Dates: start: 20111231, end: 20120411
  8. ASPIRIN [Concomitant]
     Dosage: 325 mg, qd
     Route: 048
     Dates: start: 20120412, end: 20120531
  9. ASPIRIN [Concomitant]
     Dosage: 81 mg, qd
     Route: 048
     Dates: start: 20120601
  10. CARVEDILOL [Concomitant]
     Indication: PRODUCT USED FOR UNKNOWN INDICATION
     Dosage: 25 mg, bid
     Dates: start: 20091204, end: 20111110
  11. CARVEDILOL [Concomitant]
     Dosage: 25 mg, bid
     Dates: start: 20111106
  12. FERROUS SULPHATE                   /00023503/ [Concomitant]
     Indication: PRODUCT USED FOR UNKNOWN INDICATION
     Dosage: 325 mg, tid
     Dates: start: 20110516, end: 20120605
  13. FISH OIL [Concomitant]
     Indication: PRODUCT USED FOR UNKNOWN INDICATION
     Dosage: 1000 mg, tid
     Dates: start: 20091204
  14. FORMOTEROL FUMARATE [Concomitant]
     Indication: PRODUCT USED FOR UNKNOWN INDICATION
     Dosage: 12 ?g, bid
     Dates: start: 20091204, end: 20111114
  15. GEMFIBROZIL [Concomitant]
     Indication: PRODUCT USED FOR UNKNOWN INDICATION
     Dosage: 600 mg, bid
     Dates: start: 20091204, end: 20111030
  16. METFORMIN [Concomitant]
     Indication: PRODUCT USED FOR UNKNOWN INDICATION
     Dosage: 1000 mg, bid
     Dates: start: 20101203, end: 20120531
  17. MOMETASONE FUROATE [Concomitant]
     Indication: PRODUCT USED FOR UNKNOWN INDICATION
     Dosage: 440 ?g, bid
     Dates: start: 20091204, end: 20111114
  18. MULTIVITAMIN                       /00097801/ [Concomitant]
     Indication: PRODUCT USED FOR UNKNOWN INDICATION
     Dosage: 1 DF, qd
     Dates: start: 20091204
  19. NITROGLYCERIN [Concomitant]
     Indication: PRODUCT USED FOR UNKNOWN INDICATION
     Dosage: 0.4 mg, prn
     Dates: start: 20091204
  20. OMEPRAZOLE [Concomitant]
     Indication: PRODUCT USED FOR UNKNOWN INDICATION
     Dosage: 4 mg, bid
     Dates: start: 20110527, end: 20111105
  21. PRASUGREL HYDROCHLORIDE [Concomitant]
     Indication: PRODUCT USED FOR UNKNOWN INDICATION
     Dosage: 10 mg, qd
     Dates: start: 20101213, end: 20111202
  22. RANITIDINE [Concomitant]
     Indication: PRODUCT USED FOR UNKNOWN INDICATION
     Dosage: 150 mg, qd
     Dates: start: 20101217, end: 20120605
  23. ROSUVASTATIN [Concomitant]
     Indication: PRODUCT USED FOR UNKNOWN INDICATION
     Dosage: 40 mg, qd
     Dates: start: 20101217
  24. CHOLECALCIFEROL [Concomitant]
     Indication: PRODUCT USED FOR UNKNOWN INDICATION
     Dosage: 1000 U, qd
     Dates: start: 20110516
  25. LISINOPRIL [Concomitant]
     Indication: PRODUCT USED FOR UNKNOWN INDICATION
     Dosage: 10 mg, qd
     Dates: start: 20110909, end: 20120125
  26. LISINOPRIL [Concomitant]
     Dosage: 20 mg, qd
     Dates: start: 20120125, end: 20120531
  27. PLAVIX [Concomitant]
     Indication: PRODUCT USED FOR UNKNOWN INDICATION
     Dosage: 75 mg, qd
     Dates: start: 20111106, end: 20120411
  28. PLAVIX [Concomitant]
     Dosage: 150 mg, qd
     Dates: start: 20120414, end: 20120419
  29. PLAVIX [Concomitant]
     Dosage: 75 mg, qd
     Dates: start: 20120420
  30. NIACIN [Concomitant]
     Indication: PRODUCT USED FOR UNKNOWN INDICATION
     Dosage: 500 mg, qd
     Dates: start: 20111104, end: 20111228
  31. NIACIN [Concomitant]
     Dosage: 500 mg, qd
     Dates: start: 20111019, end: 20111031
  32. PANTOPRAZOLE [Concomitant]
     Indication: PRODUCT USED FOR UNKNOWN INDICATION
     Dosage: 40 mg, bid
     Dates: start: 20111106, end: 20111121
  33. ISOSORBIDE MONONITRATE [Concomitant]
     Indication: PRODUCT USED FOR UNKNOWN INDICATION
     Dosage: 30 mg, qd
     Dates: start: 20110611, end: 20111101
  34. ISOSORBIDE MONONITRATE [Concomitant]
     Dosage: 60 mg, qd
     Dates: start: 20111106, end: 20111110
  35. ISOSORBIDE MONONITRATE [Concomitant]
     Dosage: 90 mg, qd
     Dates: start: 20111112
  36. AMLODIPINE [Concomitant]
     Indication: PRODUCT USED FOR UNKNOWN INDICATION
     Dosage: 5 mg, qd
     Dates: start: 20111106, end: 20111121
  37. AMLODIPINE [Concomitant]
     Dosage: 10 mg, qd
     Dates: start: 20111122, end: 20120605
  38. AMLODIPINE [Concomitant]
     Dosage: 5 mg, qd
     Dates: start: 20120607
  39. SYMBICORT [Concomitant]
     Indication: PRODUCT USED FOR UNKNOWN INDICATION
     Dosage: 2 Puff, qd
     Dates: start: 20111114
  40. METOPROLOL [Concomitant]
     Indication: PRODUCT USED FOR UNKNOWN INDICATION
     Dosage: 50 mg, bid
     Dates: start: 20111112, end: 20111205
  41. METOPROLOL [Concomitant]
     Dosage: 75 mg, bid
     Dates: start: 20111207, end: 20120410
  42. METOPROLOL [Concomitant]
     Dosage: 100 mg, bid
     Dates: start: 20120416
  43. METOPROLOL [Concomitant]
     Dosage: 150 mg, bid
     Dates: start: 20120601
  44. ALBUTEROL                          /00139501/ [Concomitant]
     Indication: PRODUCT USED FOR UNKNOWN INDICATION
     Dosage: 2 DF, prn
     Dates: start: 20091204
  45. FUROSEMIDE [Concomitant]
     Indication: PRODUCT USED FOR UNKNOWN INDICATION
     Dosage: 20 mg, qd
     Dates: start: 20120208, end: 20120531
  46. FUROSEMIDE [Concomitant]
     Dosage: 20 mg
     Dates: start: 20120601
  47. INFLUENZA VACCINE [Concomitant]
     Indication: PRODUCT USED FOR UNKNOWN INDICATION

REACTIONS (4)
  - Angina pectoris [Recovered/Resolved]
  - Hypoglycaemia [Recovered/Resolved]
  - Cellulitis [Recovered/Resolved]
  - Decreased appetite [Unknown]
